FAERS Safety Report 16315084 (Version 1)
Quarter: 2019Q2

REPORT INFORMATION
  Report Type: Spontaneous
  Country: US (occurrence: US)
  Receive Date: 20190410
  Receipt Date: 20190410
  Transmission Date: 20190711
  Serious: No
  Sender: FDA-Public Use
  Company Number: None

PATIENT
  Age: 50 Year
  Sex: Female

DRUGS (11)
  1. ENALAPRIL [Concomitant]
     Active Substance: ENALAPRIL
  2. ATIVAN [Concomitant]
     Active Substance: LORAZEPAM
  3. ENBREL [Suspect]
     Active Substance: ETANERCEPT
     Indication: ANKYLOSING SPONDYLITIS
     Route: 058
     Dates: start: 20180207
  4. IBUPROFEN. [Concomitant]
     Active Substance: IBUPROFEN
  5. SULFASALAZINE. [Concomitant]
     Active Substance: SULFASALAZINE
  6. CELEXA [Concomitant]
     Active Substance: CITALOPRAM HYDROBROMIDE
  7. LAMICTAL [Concomitant]
     Active Substance: LAMOTRIGINE
  8. BUPROPION. [Concomitant]
     Active Substance: BUPROPION
  9. NALTREXONE [Concomitant]
     Active Substance: NALTREXONE
  10. FOLIC ACID. [Concomitant]
     Active Substance: FOLIC ACID
  11. METHOTREXATE. [Concomitant]
     Active Substance: METHOTREXATE

REACTIONS (1)
  - Cervix carcinoma [None]
